FAERS Safety Report 22015199 (Version 3)
Quarter: 2023Q2

REPORT INFORMATION
  Report Type: Report from Study
  Country: BY (occurrence: BY)
  Receive Date: 20230221
  Receipt Date: 20230607
  Transmission Date: 20230721
  Serious: Yes (Death, Other)
  Sender: FDA-Public Use
  Company Number: BY-MYLANLABS-2023M1017538

PATIENT
  Age: 90 Year
  Sex: Female
  Weight: 43 kg

DRUGS (14)
  1. PRETOMANID [Suspect]
     Active Substance: PRETOMANID
     Indication: Product used for unknown indication
     Dosage: 200 MILLIGRAM (OD)
     Route: 048
     Dates: start: 20220907
  2. BEDAQUILINE [Suspect]
     Active Substance: BEDAQUILINE
     Indication: Pulmonary tuberculosis
     Dosage: 200 MILLIGRAM, BIWEEKLY (TIW)
     Route: 048
     Dates: start: 20220907
  3. BEDAQUILINE [Suspect]
     Active Substance: BEDAQUILINE
     Dosage: 400 MILLIGRAM, QD
     Route: 048
     Dates: start: 20220908, end: 20220921
  4. BEDAQUILINE [Suspect]
     Active Substance: BEDAQUILINE
     Dosage: 200 MILLIGRAM, 3XW
     Route: 048
     Dates: start: 20220923
  5. LINEZOLID [Suspect]
     Active Substance: LINEZOLID
     Indication: Pulmonary tuberculosis
     Dosage: 600 MILLIGRAM
     Route: 048
     Dates: start: 20220907
  6. LINEZOLID [Suspect]
     Active Substance: LINEZOLID
     Dosage: 300 MILLIGRAM (OD)
     Route: 048
     Dates: start: 20221125
  7. LINEZOLID [Suspect]
     Active Substance: LINEZOLID
     Dosage: 600 MILLIGRAM, QD
     Route: 065
     Dates: start: 20220908, end: 20221124
  8. LINEZOLID [Suspect]
     Active Substance: LINEZOLID
     Dosage: 300 MILLIGRAM, QD
     Route: 065
     Dates: start: 20221125
  9. MOXIFLOXACIN [Suspect]
     Active Substance: MOXIFLOXACIN
     Indication: Product used for unknown indication
     Dosage: 400 MILLIGRAM (OD)
     Route: 048
     Dates: start: 20220907, end: 20230124
  10. PRETOMANID [Suspect]
     Active Substance: PRETOMANID
     Indication: Pulmonary tuberculosis
     Dosage: 200 MILLIGRAM, QD
     Route: 048
     Dates: start: 20220908
  11. METOPROLOL [Concomitant]
     Active Substance: METOPROLOL
     Indication: Sinus tachycardia
     Dosage: UNK (0.025 PER OS) (START:03-FEB-2023)
     Route: 065
     Dates: end: 20230210
  12. ATORVASTATIN [Concomitant]
     Active Substance: ATORVASTATIN
     Indication: Hypercholesterolaemia
     Dosage: UNK (0.01 PER OS) (START:03-FEB-2023)
     Route: 065
     Dates: end: 20230210
  13. ASPIRIN [Concomitant]
     Active Substance: ASPIRIN
     Indication: Myocardial ischaemia
     Dosage: UNK (0.075 PER OS)(START:03-FEB-2023)
     Route: 065
     Dates: end: 20230210
  14. PYRIDOXINE [Concomitant]
     Active Substance: PYRIDOXINE
     Indication: Prophylaxis
     Dosage: 100 MILLIGRAM, QD
     Route: 048
     Dates: start: 20220906, end: 20230210

REACTIONS (4)
  - Cardiac failure acute [Fatal]
  - Pulse absent [Fatal]
  - Dyspnoea [Fatal]
  - Fall [Unknown]

NARRATIVE: CASE EVENT DATE: 20221101
